FAERS Safety Report 7985390-5 (Version None)
Quarter: 2011Q4

REPORT INFORMATION
  Report Type: 
  Country: None (occurrence: None)
  Receive Date: 20111216
  Receipt Date: 20111213
  Transmission Date: 20120403
  Serious: Yes (Life-Threatening, Hospitalization)
  Sender: FDA-Public Use
  Company Number: US-JNJFOC-20111204088

PATIENT
  Age: 44 Year
  Sex: Female
  Weight: 119.5 kg

DRUGS (15)
  1. BEVACIZUMAB [Suspect]
     Indication: BREAST CANCER
     Route: 065
     Dates: start: 20110324
  2. BACITRACIN [Concomitant]
     Route: 065
  3. ACETAMINOPHEN [Concomitant]
     Route: 065
  4. PEPCID [Concomitant]
     Route: 065
  5. PROCHLORPERAZINE [Concomitant]
     Route: 065
  6. AMBIEN [Concomitant]
     Route: 065
  7. CEFEPIME [Concomitant]
     Route: 065
  8. DIFLUCAN [Concomitant]
     Route: 065
  9. TESSALON [Concomitant]
     Route: 065
  10. DOXORUBICIN HCL [Suspect]
     Indication: BREAST CANCER
     Route: 042
     Dates: start: 20110324
  11. CYCLOPHOSPHAMIDE [Suspect]
     Indication: BREAST CANCER
     Route: 042
     Dates: start: 20110324
  12. TOPROL-XL [Concomitant]
     Route: 065
  13. PACLITAXEL [Suspect]
     Indication: BREAST CANCER
     Route: 042
     Dates: start: 20110324
  14. PEGFILGRASTIM [Suspect]
     Indication: BREAST CANCER
     Route: 065
     Dates: end: 20110825
  15. MUCINEX [Concomitant]
     Route: 065

REACTIONS (7)
  - CARDIAC DISORDER [None]
  - FEBRILE NEUTROPENIA [None]
  - ANAEMIA [None]
  - WHITE BLOOD CELL COUNT DECREASED [None]
  - DIARRHOEA [None]
  - PLATELET COUNT DECREASED [None]
  - LYMPHATIC DISORDER [None]
